FAERS Safety Report 9850226 (Version 1)
Quarter: 2013Q4

REPORT INFORMATION
  Report Type: Spontaneous
  Country: US (occurrence: None)
  Receive Date: 20131226
  Receipt Date: 20131226
  Transmission Date: 20140711
  Serious: Yes (Hospitalization)
  Sender: FDA-Public Use
  Company Number: PHEH2012US022095

PATIENT
  Age: 45 Year
  Sex: Female

DRUGS (10)
  1. DIOVAN (NOT SPECIFIED) [Suspect]
  2. LISINOPRIL (LISINOPRIL) [Concomitant]
  3. PRAVASTATIN (PRAVASTATIN) [Concomitant]
  4. LASIX (FUROSEMIDE) [Concomitant]
  5. SYNTHROID (LEVOTHYROXINE SODIUM) [Concomitant]
  6. METHADONE (METHADONE) [Concomitant]
  7. HYDROCODONE (HYDROCODONE) [Concomitant]
  8. ZOLOFT (SERTRALINE HYDROCHLORIDE) [Concomitant]
  9. KLONOPIN (CLONAZEPAM) (TABLETS) [Concomitant]
  10. ALBUTEROL (SALBUTAMOL) [Concomitant]

REACTIONS (1)
  - Hypertension [None]
